FAERS Safety Report 7832580-8 (Version None)
Quarter: 2011Q4

REPORT INFORMATION
  Report Type: 
  Country: None (occurrence: None)
  Receive Date: 20111024
  Receipt Date: 20111012
  Transmission Date: 20120403
  Serious: Yes (Hospitalization)
  Sender: FDA-Public Use
  Company Number: US-BIOGENIDEC-2011BI036540

PATIENT
  Age: 55 Year
  Sex: Female

DRUGS (2)
  1. AVONEX [Suspect]
     Indication: MULTIPLE SCLEROSIS
     Route: 030
     Dates: start: 20110806
  2. AVONEX [Suspect]
     Route: 030
     Dates: start: 20080701, end: 20100701

REACTIONS (3)
  - FALL [None]
  - INJURY [None]
  - DYSSTASIA [None]
